FAERS Safety Report 7727925-3 (Version None)
Quarter: 2011Q3

REPORT INFORMATION
  Report Type: 
  Country: None (occurrence: None)
  Receive Date: 20110905
  Receipt Date: 20110824
  Transmission Date: 20111222
  Serious: No
  Sender: FDA-Public Use
  Company Number: US-BIOGENIDEC-2011BI032838

PATIENT
  Sex: Male

DRUGS (1)
  1. TYSABRI [Suspect]
     Indication: MULTIPLE SCLEROSIS
     Route: 042
     Dates: start: 20070115

REACTIONS (5)
  - FEELING ABNORMAL [None]
  - MUSCULAR WEAKNESS [None]
  - FREQUENT BOWEL MOVEMENTS [None]
  - BLOOD PRESSURE DECREASED [None]
  - INSOMNIA [None]
